FAERS Safety Report 9757490 (Version 4)
Quarter: 2014Q1

REPORT INFORMATION
  Report Type: Report from Study
  Country: CN (occurrence: CN)
  Receive Date: 20131215
  Receipt Date: 20140113
  Transmission Date: 20141002
  Serious: Yes (Hospitalization)
  Sender: FDA-Public Use
  Company Number: CN-PFIZER INC-2013344761

PATIENT
  Age: 60 Year
  Sex: Male
  Weight: 48 kg

DRUGS (6)
  1. TOFACITINIB CITRATE [Suspect]
     Indication: RHEUMATOID ARTHRITIS
     Dosage: 5 MG, 2X/DAY
     Route: 048
     Dates: start: 20120712, end: 20131125
  2. PREDNISONE [Suspect]
     Indication: RHEUMATOID ARTHRITIS
     Dosage: 5 MG, 1X/DAY
     Route: 048
     Dates: start: 20090812, end: 20131125
  3. VALSARTAN [Concomitant]
     Indication: HYPERTENSION
     Dosage: 80 MG, 1X/DAY
     Route: 048
     Dates: start: 20130116, end: 20131125
  4. BAYASPIRIN [Concomitant]
     Indication: HYPERTENSION
     Dosage: 5 MG, 1X/DAY
     Route: 048
     Dates: start: 20130115, end: 20131125
  5. LEFLUNOMIDE [Concomitant]
     Indication: RHEUMATOID ARTHRITIS
     Dosage: 10 MG, 1X/DAY
     Route: 048
     Dates: start: 20090812, end: 20131125
  6. FELODIPINE [Concomitant]
     Indication: HYPERTENSION
     Dosage: 1X/DAY
     Route: 048
     Dates: start: 20130107, end: 20131125

REACTIONS (1)
  - Upper gastrointestinal haemorrhage [Recovered/Resolved]
